FAERS Safety Report 16027316 (Version 1)
Quarter: 2019Q1

REPORT INFORMATION
  Report Type: Report from Study
  Country: None (occurrence: FR)
  Receive Date: 20190304
  Receipt Date: 20190304
  Transmission Date: 20190418
  Serious: Yes (Disabling)
  Sender: FDA-Public Use
  Company Number: FR-ABBVIE-19S-056-2684740-00

PATIENT
  Age: 47 Year
  Sex: Female

DRUGS (4)
  1. XANAX [Concomitant]
     Active Substance: ALPRAZOLAM
     Indication: PRODUCT USED FOR UNKNOWN INDICATION
     Dosage: 1X AT WAKE-UP, 1X AT BEDTIME
     Route: 065
  2. LOVENOX [Concomitant]
     Active Substance: ENOXAPARIN SODIUM
     Indication: PRODUCT USED FOR UNKNOWN INDICATION
     Dosage: 1 INJECTION DAILY
     Route: 050
  3. B VITAMIN COMP [Concomitant]
     Indication: PRODUCT USED FOR UNKNOWN INDICATION
     Route: 065
  4. DUODOPA [Suspect]
     Active Substance: CARBIDOPA\LEVODOPA
     Indication: PRODUCT USED FOR UNKNOWN INDICATION
     Dosage: MD: 5ML,ED: 3ML  ?3.5 ML/H 5:30AM-3:00PM?3.8 ML/H 3:00PM-10:00PM?3 ML/H 10:00PM-5:30AM
     Route: 050
     Dates: start: 20170201

REACTIONS (3)
  - Musculoskeletal stiffness [Not Recovered/Not Resolved]
  - Pain [Not Recovered/Not Resolved]
  - On and off phenomenon [Not Recovered/Not Resolved]
